FAERS Safety Report 23867062 (Version 2)
Quarter: 2024Q2

REPORT INFORMATION
  Report Type: Spontaneous
  Country: IT (occurrence: IT)
  Receive Date: 20240517
  Receipt Date: 20240602
  Transmission Date: 20240715
  Serious: Yes (Hospitalization, Other)
  Sender: FDA-Public Use
  Company Number: None

PATIENT
  Age: 54 Year

DRUGS (9)
  1. BENDAMUSTINE [Suspect]
     Active Substance: BENDAMUSTINE
     Indication: Non-Hodgkin^s lymphoma
     Dosage: R-BENDAMUSTINE - RITUXIMAB, BENDAMUSTINE
  2. BENDAMUSTINE [Suspect]
     Active Substance: BENDAMUSTINE
     Indication: Non-Hodgkin^s lymphoma stage II
  3. RITUXIMAB [Suspect]
     Active Substance: RITUXIMAB
     Indication: Non-Hodgkin^s lymphoma stage II
     Dosage: R-BENDAMUSTINE - RITUXIMAB, BENDAMUSTINE
  4. RITUXIMAB [Suspect]
     Active Substance: RITUXIMAB
     Dosage: R-CHOP - CYCLOPHOSPHAMIDE, DOXORUBICIN, PREDNISONE, RITUXIMAB, VINCRISTINE
  5. CYCLOPHOSPHAMIDE [Suspect]
     Active Substance: CYCLOPHOSPHAMIDE
     Indication: Non-Hodgkin^s lymphoma stage II
     Dosage: R-CHOP - CYCLOPHOSPHAMIDE, DOXORUBICIN, PREDNISONE, RITUXIMAB, VINCRISTINE
  6. DOXORUBICIN [Suspect]
     Active Substance: DOXORUBICIN
     Indication: Non-Hodgkin^s lymphoma stage II
     Dosage: R-CHOP - CYCLOPHOSPHAMIDE, DOXORUBICIN, PREDNISONE, RITUXIMAB, VINCRISTINE
  7. PREDNISONE [Suspect]
     Active Substance: PREDNISONE
     Indication: Non-Hodgkin^s lymphoma stage II
     Dosage: R-CHOP - CYCLOPHOSPHAMIDE, DOXORUBICIN, PREDNISONE, RITUXIMAB, VINCRISTINE
  8. VINCRISTINE [Suspect]
     Active Substance: VINCRISTINE
     Indication: Non-Hodgkin^s lymphoma stage II
     Dosage: R-CHOP - CYCLOPHOSPHAMIDE, DOXORUBICIN, PREDNISONE, RITUXIMAB, VINCRISTINE
  9. EPCORITAMAB [Suspect]
     Active Substance: EPCORITAMAB
     Indication: Non-Hodgkin^s lymphoma stage II

REACTIONS (1)
  - COVID-19 [Recovered/Resolved]

NARRATIVE: CASE EVENT DATE: 20220601
